FAERS Safety Report 8532363 (Version 3)
Quarter: 2012Q4

REPORT INFORMATION
  Report Type: 
  Country: DE (occurrence: FR)
  Receive Date: 20120426
  Receipt Date: 20121228
  Transmission Date: 20130627
  Serious: Yes (Other)
  Sender: FDA-Public Use
  Company Number: FR-ALEXION-A201200712

PATIENT
  Age: 7 Year
  Sex: Male

DRUGS (7)
  1. SOLIRIS 300MG [Suspect]
     Indication: HAEMOLYTIC URAEMIC SYNDROME
     Dosage: 600 mg, qw
     Route: 042
  2. SOLIRIS 300MG [Suspect]
     Indication: PROPHYLAXIS
     Dosage: 900 mg, q2w
     Route: 042
  3. SOLIRIS 300MG [Suspect]
     Dosage: Every 3 weeks
     Route: 042
  4. LABETALOL [Concomitant]
     Indication: HYPERTENSION
     Route: 065
  5. NIFEDIPINE [Concomitant]
     Indication: HYPERTENSION
  6. MINOXIDIL [Concomitant]
     Indication: HYPERTENSION
     Route: 065
  7. ACE INHIBITOR NOS [Concomitant]
     Indication: HYPERTENSION

REACTIONS (3)
  - Pseudomonal sepsis [Recovered/Resolved]
  - Renal artery stenosis [Recovered/Resolved]
  - Transplant rejection [Recovered/Resolved]
